FAERS Safety Report 7465412-0 (Version None)
Quarter: 2011Q2

REPORT INFORMATION
  Report Type: 
  Country: None (occurrence: None)
  Receive Date: 20110509
  Receipt Date: 20100923
  Transmission Date: 20111010
  Serious: No
  Sender: FDA-Public Use
  Company Number: US-BAUSCH-2010BL005384

PATIENT
  Age: 74 Year
  Sex: Male

DRUGS (1)
  1. LOTEMAX [Suspect]
     Indication: CORNEAL OEDEMA
     Route: 047
     Dates: start: 20100916, end: 20100922

REACTIONS (1)
  - HALLUCINATION [None]
